FAERS Safety Report 4726705-0 (Version None)
Quarter: 2005Q3

REPORT INFORMATION
  Report Type: 
  Country: None (occurrence: None)
  Receive Date: 20050725
  Receipt Date: 20050412
  Transmission Date: 20060218
  Serious: No
  Sender: FDA-Public Use
  Company Number: USA040977680

PATIENT
  Age: 14 Year
  Sex: Male
  Weight: 40 kg

DRUGS (3)
  1. STRATTERA [Suspect]
     Indication: ATTENTION DEFICIT/HYPERACTIVITY DISORDER
     Dosage: 40 MG/1 DAY
     Dates: start: 20040611, end: 20050909
  2. ZYRTEC [Concomitant]
  3. ALBUTEROL [Concomitant]

REACTIONS (5)
  - ANXIETY [None]
  - BLOOD PRESSURE INCREASED [None]
  - HEART RATE INCREASED [None]
  - NAUSEA [None]
  - VOMITING [None]
